FAERS Safety Report 13953964 (Version 1)
Quarter: 2017Q3

REPORT INFORMATION
  Report Type: Spontaneous
  Country: US (occurrence: US)
  Receive Date: 20170911
  Receipt Date: 20170911
  Transmission Date: 20171128
  Serious: No
  Sender: FDA-Public Use
  Company Number: US-TEVA-789875ACC

PATIENT
  Sex: Female

DRUGS (1)
  1. VENLAFAXINE [Suspect]
     Active Substance: VENLAFAXINE HYDROCHLORIDE
     Indication: PANIC ATTACK

REACTIONS (9)
  - Anxiety [Unknown]
  - Panic attack [Unknown]
  - Amnesia [Unknown]
  - Apathy [Unknown]
  - Depressed mood [Unknown]
  - Aphasia [Unknown]
  - Hypersomnia [Unknown]
  - Emotional poverty [Unknown]
  - Fatigue [Unknown]
